FAERS Safety Report 13305874 (Version 8)
Quarter: 2018Q1

REPORT INFORMATION
  Report Type: Spontaneous
  Country: GB (occurrence: GB)
  Receive Date: 20170308
  Receipt Date: 20180214
  Transmission Date: 20180508
  Serious: Yes (Hospitalization, Other)
  Sender: FDA-Public Use
  Company Number: GB-TEVA-744911ACC

PATIENT
  Age: 83 Year
  Sex: Female

DRUGS (2)
  1. CIPROFLOXACIN. [Suspect]
     Active Substance: CIPROFLOXACIN
     Indication: PRODUCT USED FOR UNKNOWN INDICATION
  2. CIPROFLOXACIN. [Suspect]
     Active Substance: CIPROFLOXACIN
     Dates: start: 20130303

REACTIONS (32)
  - Emotional disorder [Unknown]
  - Musculoskeletal stiffness [Unknown]
  - Dementia [Unknown]
  - Skin ulcer [Unknown]
  - Paraesthesia [Unknown]
  - Musculoskeletal discomfort [Unknown]
  - Weight decreased [Unknown]
  - Malaise [Unknown]
  - Insomnia [Unknown]
  - Tinnitus [Unknown]
  - Muscular weakness [Unknown]
  - Neuropathy peripheral [Unknown]
  - Nerve injury [Unknown]
  - Enuresis [Unknown]
  - Haemorrhage [Unknown]
  - Inflammation [Unknown]
  - Arthritis [Unknown]
  - Pain in extremity [Unknown]
  - Bladder disorder [Unknown]
  - Gastrointestinal disorder [Unknown]
  - Alopecia [Unknown]
  - Crying [Unknown]
  - Mental fatigue [Unknown]
  - Retracted nipple [Unknown]
  - Breast pain [Unknown]
  - Peripheral swelling [Unknown]
  - Impaired healing [Unknown]
  - Fall [Unknown]
  - Osteoarthritis [Unknown]
  - Pain [Unknown]
  - Fatigue [Unknown]
  - Condition aggravated [Unknown]

NARRATIVE: CASE EVENT DATE: 20130303
